FAERS Safety Report 8890062 (Version 1)
Quarter: 2012Q4

REPORT INFORMATION
  Report Type: 
  Country: CA (occurrence: CA)
  Receive Date: 20121106
  Receipt Date: 20121106
  Transmission Date: 20130627
  Serious: Yes (Hospitalization)
  Sender: FDA-Public Use
  Company Number: PHHY2008CA17897

PATIENT
  Sex: Male

DRUGS (3)
  1. SANDOSTATIN LAR [Suspect]
     Indication: METASTATIC CARCINOID TUMOUR
     Dosage: 30 mg, QMO
     Route: 030
     Dates: start: 20060115
  2. DILAUDID [Concomitant]
     Dosage: 1.5ml/3 mg Q3 hrs prn
  3. DURAGESIC [Concomitant]
     Dosage: 50ug/hr- patch 1Q 3 days

REACTIONS (5)
  - Respiratory arrest [Unknown]
  - Coma [Unknown]
  - Heart rate decreased [Unknown]
  - Nerve injury [Unknown]
  - Movement disorder [Unknown]
